FAERS Safety Report 8538650-3 (Version None)
Quarter: 2012Q3

REPORT INFORMATION
  Report Type: 
  Country: None (occurrence: None)
  Receive Date: 20120713
  Receipt Date: 20120628
  Transmission Date: 20120928
  Serious: Yes (Hospitalization)
  Sender: FDA-Public Use
  Company Number: 2012000162

PATIENT
  Age: 87 Year
  Sex: Male

DRUGS (4)
  1. GLYADE (GLICLAZIDE) [Concomitant]
  2. CRESTOR [Concomitant]
  3. ACEON [Suspect]
     Indication: ESSENTIAL HYPERTENSION
     Dosage: 2. MG, QD, ORAL
     Route: 048
     Dates: start: 20120517, end: 20120518
  4. ASPIRIN [Concomitant]

REACTIONS (5)
  - DYSPHAGIA [None]
  - OROPHARYNGEAL PAIN [None]
  - PHARYNGEAL OEDEMA [None]
  - SWOLLEN TONGUE [None]
  - SPEECH DISORDER [None]
